FAERS Safety Report 25892232 (Version 3)
Quarter: 2025Q4

REPORT INFORMATION
  Report Type: Spontaneous
  Country: JP (occurrence: JP)
  Receive Date: 20251007
  Receipt Date: 20251219
  Transmission Date: 20260118
  Serious: Yes (Hospitalization)
  Sender: ROCHE
  Company Number: None

PATIENT
  Age: 42 Year
  Sex: Female

DRUGS (9)
  1. MYCOPHENOLATE MOFETIL [Suspect]
     Active Substance: MYCOPHENOLATE MOFETIL
     Indication: Prophylaxis against transplant rejection
  2. ASPIRIN [Suspect]
     Active Substance: ASPIRIN
     Indication: Antiplatelet therapy
     Dosage: LOW DOSE
  3. OLMESARTAN [Suspect]
     Active Substance: OLMESARTAN
     Indication: Antiplatelet therapy
  4. AZILSARTAN KAMEDOXOMIL [Suspect]
     Active Substance: AZILSARTAN KAMEDOXOMIL
     Indication: Antiplatelet therapy
  5. METHYLPREDNISOLONE [Suspect]
     Active Substance: METHYLPREDNISOLONE
     Indication: Prophylaxis against transplant rejection
  6. TACROLIMUS [Suspect]
     Active Substance: TACROLIMUS
     Indication: Prophylaxis against transplant rejection
  7. FEBUXOSTAT [Concomitant]
     Active Substance: FEBUXOSTAT
  8. ATORVASTATIN [Concomitant]
     Active Substance: ATORVASTATIN
  9. VONOPRAZAN [Concomitant]
     Active Substance: VONOPRAZAN

REACTIONS (1)
  - Enteritis [Recovered/Resolved with Sequelae]
